FAERS Safety Report 9778005 (Version 1)
Quarter: 2013Q4

REPORT INFORMATION
  Report Type: Spontaneous
  Country: US (occurrence: US)
  Receive Date: 20131223
  Receipt Date: 20131223
  Transmission Date: 20140711
  Serious: No
  Sender: FDA-Public Use
  Company Number: US-009507513-1311USA010985

PATIENT
  Sex: Female
  Weight: 82.54 kg

DRUGS (1)
  1. IMPLANON [Suspect]
     Indication: CONTRACEPTION
     Dosage: 1 ROD
     Dates: start: 20120328, end: 20131119

REACTIONS (3)
  - Device breakage [Recovered/Resolved]
  - Implant site pain [Recovered/Resolved]
  - Implant site pain [Recovered/Resolved]
